FAERS Safety Report 23309265 (Version 2)
Quarter: 2024Q1

REPORT INFORMATION
  Report Type: Spontaneous
  Country: US (occurrence: US)
  Receive Date: 20231218
  Receipt Date: 20240119
  Transmission Date: 20240409
  Serious: No
  Sender: FDA-Public Use
  Company Number: US-PFIZER INC-PV202300200069

PATIENT
  Age: 57 Year
  Sex: Female
  Weight: 52.426 kg

DRUGS (2)
  1. IBRANCE [Suspect]
     Active Substance: PALBOCICLIB
     Indication: Breast cancer female
     Dosage: 1 QD ON DAYS 1-21
     Route: 048
     Dates: start: 20200226, end: 20200228
  2. IBRANCE [Suspect]
     Active Substance: PALBOCICLIB
     Dosage: 1 QD ON DAYS 1-21
     Route: 048
     Dates: start: 20220420

REACTIONS (1)
  - Drug intolerance [Unknown]

NARRATIVE: CASE EVENT DATE: 20200101
